FAERS Safety Report 9172061 (Version 1)
Quarter: 2013Q1

REPORT INFORMATION
  Report Type: Spontaneous
  Country: BR (occurrence: BR)
  Receive Date: 20130319
  Receipt Date: 20130319
  Transmission Date: 20140127
  Serious: Yes (Hospitalization)
  Sender: FDA-Public Use
  Company Number: BR-ROCHE-617222

PATIENT
  Age: 2 Year
  Sex: Female

DRUGS (5)
  1. CEFTRIAXONE SODIUM [Suspect]
     Indication: SYSTEMIC LUPUS ERYTHEMATOSUS
     Route: 065
  2. OXACILLIN [Suspect]
     Indication: SYSTEMIC LUPUS ERYTHEMATOSUS
     Route: 065
  3. METHYLPREDNISOLONE [Concomitant]
     Indication: VASCULITIS
     Route: 042
  4. METHYLPREDNISOLONE [Concomitant]
     Route: 042
  5. CYCLOPHOSPHAMIDE [Concomitant]
     Indication: VASCULITIS
     Route: 042

REACTIONS (1)
  - Drug reaction with eosinophilia and systemic symptoms [Recovering/Resolving]
